FAERS Safety Report 5809928-9 (Version None)
Quarter: 2008Q3

REPORT INFORMATION
  Report Type: 
  Country: None (occurrence: None)
  Receive Date: 20080714
  Receipt Date: 20080714
  Transmission Date: 20090109
  Serious: Yes (Disabling, Other)
  Sender: FDA-Public Use
  Company Number: None

PATIENT
  Age: 71 Year
  Sex: Male
  Weight: 84.8226 kg

DRUGS (5)
  1. CELLCEPT [Suspect]
     Indication: IMMUNOSUPPRESSION
     Dosage: 1000MG 2 TIMES A DAY PO
     Route: 048
     Dates: start: 20001026, end: 20080711
  2. CELLCEPT [Suspect]
     Indication: RENAL TRANSPLANT
     Dosage: 1000MG 2 TIMES A DAY PO
     Route: 048
     Dates: start: 20001026, end: 20080711
  3. MEDROL [Concomitant]
  4. RAPAMUNE [Concomitant]
  5. PROGRAF [Concomitant]

REACTIONS (6)
  - APHASIA [None]
  - ASTHENIA [None]
  - DECREASED ACTIVITY [None]
  - DIPLOPIA [None]
  - PARAESTHESIA [None]
  - PHOTOPHOBIA [None]
